FAERS Safety Report 15454117 (Version 1)
Quarter: 2018Q4

REPORT INFORMATION
  Report Type: Spontaneous
  Country: US (occurrence: US)
  Receive Date: 20181002
  Receipt Date: 20181002
  Transmission Date: 20190204
  Serious: No
  Sender: FDA-Public Use
  Company Number: US-TEVA-2018-US-960005

PATIENT
  Sex: Female

DRUGS (1)
  1. AUSTEDO [Suspect]
     Active Substance: DEUTETRABENAZINE
     Indication: TARDIVE DYSKINESIA
     Dosage: 12 MILLIGRAM DAILY; 6MG TWICE A DAY
     Route: 065
     Dates: start: 201808, end: 2018

REACTIONS (4)
  - Dysphonia [Unknown]
  - Contusion [Not Recovered/Not Resolved]
  - Lip swelling [Recovering/Resolving]
  - Mouth swelling [Recovering/Resolving]
